FAERS Safety Report 8317269-3 (Version None)
Quarter: 2012Q2

REPORT INFORMATION
  Report Type: 
  Country: None (occurrence: None)
  Receive Date: 20120425
  Receipt Date: 20120417
  Transmission Date: 20120825
  Serious: Yes (Hospitalization, Other)
  Sender: FDA-Public Use
  Company Number: 2012SP013606

PATIENT
  Age: 58 Year
  Sex: Female
  Weight: 39 kg

DRUGS (24)
  1. MUCOSTA [Concomitant]
  2. THEO-DUR [Concomitant]
  3. ISOTONIC SOLUTIONS [Concomitant]
  4. ROZAGOOD [Concomitant]
  5. LACTEC [Concomitant]
  6. REBETOL [Suspect]
     Indication: HEPATITIS C
     Dosage: 400 MG;QD;PO
     Route: 048
     Dates: start: 20120301, end: 20120305
  7. VITAMIN B12 [Concomitant]
  8. FERROUS CITRATE [Concomitant]
  9. LANSOPRAZOLE [Concomitant]
  10. PEG-INTRON [Suspect]
     Indication: HEPATITIS C
     Dosage: 1.5 MCG/KG'QW;SC
     Route: 058
     Dates: start: 20120301, end: 20120305
  11. MEDICON [Concomitant]
  12. MAGMITT [Concomitant]
  13. LEVOTHYROXINE SODIUM [Concomitant]
  14. ALLOPURINOL [Concomitant]
  15. VITAMEDIN [Concomitant]
  16. BIO THREE [Concomitant]
  17. DIOVAN [Concomitant]
  18. ZOLPIDEM [Concomitant]
  19. OLOPATADINE HCL [Concomitant]
  20. FOIPAN [Concomitant]
  21. TELAVIC (TELAPREVIR) (INVESTIGATIONAL DRUG) [Suspect]
     Indication: HEPATITIS C
     Dosage: 750 MG;TID;PO
     Route: 048
     Dates: start: 20120301, end: 20120305
  22. THEOLONG [Concomitant]
  23. FAMOTIDINE [Concomitant]
  24. SOLDEM 1 [Concomitant]

REACTIONS (10)
  - RENAL DISORDER [None]
  - ABDOMINAL DISCOMFORT [None]
  - BLOOD CREATININE INCREASED [None]
  - VOMITING [None]
  - BLOOD UREA INCREASED [None]
  - PYREXIA [None]
  - MALAISE [None]
  - DECREASED APPETITE [None]
  - RASH [None]
  - C-REACTIVE PROTEIN INCREASED [None]
